FAERS Safety Report 24300034 (Version 1)
Quarter: 2024Q3

REPORT INFORMATION
  Report Type: Spontaneous
  Country: CA (occurrence: CA)
  Receive Date: 20240909
  Receipt Date: 20240909
  Transmission Date: 20241017
  Serious: Yes (Hospitalization)
  Sender: MERCK
  Company Number: CA-009507513-2409CAN002885

PATIENT
  Age: 44 Year
  Sex: Male

DRUGS (3)
  1. CUBICIN [Suspect]
     Active Substance: DAPTOMYCIN
     Dosage: 750 MILLIGRAM, 1 EVERY 24 DAYS; DOSAGE FORM: NOT SPECIFIED
     Route: 042
  2. SEPTRA DS [Concomitant]
     Active Substance: SULFAMETHOXAZOLE\TRIMETHOPRIM
  3. VANCOMYCIN [Concomitant]
     Active Substance: VANCOMYCIN
     Dosage: 1000 MILLIGRAM, 1 EVERY 8 HOURS; DOSAGE FORM: NOT SPECIFIED
     Route: 042

REACTIONS (2)
  - Rash maculo-papular [Recovered/Resolved]
  - Tachycardia [Recovered/Resolved]
